FAERS Safety Report 4512149-3 (Version None)
Quarter: 2004Q4

REPORT INFORMATION
  Report Type: 
  Country: None (occurrence: None)
  Receive Date: 20041129
  Receipt Date: 20040630
  Transmission Date: 20050328
  Serious: No
  Sender: FDA-Public Use
  Company Number: US-GLAXOSMITHKLINE-A0516609A

PATIENT
  Age: 70 Year
  Sex: Male

DRUGS (3)
  1. LANOXIN [Suspect]
     Indication: ILL-DEFINED DISORDER
     Dosage: 250MCG PER DAY
     Route: 048
  2. MULTIPLE MEDICATIONS [Concomitant]
  3. EYE MEDICATION [Concomitant]

REACTIONS (1)
  - DYSGEUSIA [None]
